FAERS Safety Report 8173436-3 (Version None)
Quarter: 2012Q1

REPORT INFORMATION
  Report Type: 
  Country: None (occurrence: None)
  Receive Date: 20120229
  Receipt Date: 20120228
  Transmission Date: 20120608
  Serious: No
  Sender: FDA-Public Use
  Company Number: US-PFIZER INC-2012053116

PATIENT
  Sex: Female
  Weight: 40.816 kg

DRUGS (5)
  1. SYNTHROID [Concomitant]
     Indication: THYROID DISORDER
     Dosage: 40 MG, DAILY
     Route: 048
  2. VITAMIN TAB [Concomitant]
     Dosage: UNK
  3. LISINOPRIL [Concomitant]
     Indication: HYPERTENSION
     Dosage: 40 MG, DAILY
  4. ADVIL PM [Suspect]
     Indication: SLEEP DISORDER
     Dosage: 1 ABLET DAILY
     Route: 048
  5. ADVIL PM [Suspect]
     Indication: PAIN

REACTIONS (1)
  - DRUG INEFFECTIVE [None]
